FAERS Safety Report 4976984-X (Version None)
Quarter: 2006Q2

REPORT INFORMATION
  Report Type: 
  Country: None (occurrence: None)
  Receive Date: 20060412
  Receipt Date: 20060405
  Transmission Date: 20061013
  Serious: Yes (Hospitalization)
  Sender: FDA-Public Use
  Company Number: 002#1#2006-00100

PATIENT
  Sex: Female

DRUGS (1)
  1. NIRAVAM [Suspect]
     Indication: ANXIETY
     Dosage: SEE IMAGE
     Route: 048
     Dates: start: 20060101, end: 20060101

REACTIONS (3)
  - CHEST DISCOMFORT [None]
  - ERYTHEMA [None]
  - HEART RATE INCREASED [None]
